FAERS Safety Report 11347045 (Version 2)
Quarter: 2015Q3

REPORT INFORMATION
  Report Type: Spontaneous
  Country: US (occurrence: US)
  Receive Date: 20150806
  Receipt Date: 20150807
  Transmission Date: 20151125
  Serious: Yes (Other)
  Sender: FDA-Public Use
  Company Number: US-ELI_LILLY_AND_COMPANY-US201507010327

PATIENT
  Sex: Female

DRUGS (2)
  1. HUMALOG [Suspect]
     Active Substance: INSULIN LISPRO
     Dosage: 5 U, PRN
     Route: 065
  2. LANTUS [Concomitant]
     Active Substance: INSULIN GLARGINE
     Dosage: 28 U, QD

REACTIONS (5)
  - Blood glucose increased [Unknown]
  - Glycosylated haemoglobin increased [Unknown]
  - Incorrect dose administered [Unknown]
  - Sjogren^s syndrome [Unknown]
  - Diabetic neuropathy [Unknown]
